FAERS Safety Report 23979830 (Version 4)
Quarter: 2024Q3

REPORT INFORMATION
  Report Type: Report from Study
  Country: DE (occurrence: DE)
  Receive Date: 20240616
  Receipt Date: 20240720
  Transmission Date: 20241016
  Serious: Yes (Hospitalization)
  Sender: ABBVIE
  Company Number: DE-ABBVIE-5799873

PATIENT
  Sex: Female

DRUGS (2)
  1. CARBIDOPA\LEVODOPA [Suspect]
     Active Substance: CARBIDOPA\LEVODOPA
     Indication: Product used for unknown indication
     Dosage: MD 8.0 ML; KRT 4.2ML/H; ED 5.0 ML (BLOCKING TIME MD 20H/BLOCKING TIME ED 1H)?LAST ADMIN DATE-2023
     Route: 050
     Dates: start: 20231107
  2. CARBIDOPA\LEVODOPA [Suspect]
     Active Substance: CARBIDOPA\LEVODOPA
     Dosage: MD 5.0 ML; CRT 4.2 ML/H; ED 5.0 ML
     Route: 050
     Dates: start: 2023

REACTIONS (3)
  - Femur fracture [Not Recovered/Not Resolved]
  - Fall [Unknown]
  - Device issue [Unknown]
